FAERS Safety Report 4696728-9 (Version None)
Quarter: 2005Q2

REPORT INFORMATION
  Report Type: 
  Country: None (occurrence: None)
  Receive Date: 20050620
  Receipt Date: 20050608
  Transmission Date: 20051028
  Serious: Yes (Hospitalization, Other)
  Sender: FDA-Public Use
  Company Number: HQWYE344209JUN05

PATIENT
  Age: 76 Year
  Sex: Female
  Weight: 47.6 kg

DRUGS (3)
  1. MYLOTARG [Suspect]
     Dosage: 13.4 MG 1X PER 1 DAY INTRAVENOUS
     Route: 042
     Dates: start: 20050512, end: 20050512
  2. ALLOPURINOL [Concomitant]
  3. HYDROXYUREA [Concomitant]

REACTIONS (4)
  - BLOOD LACTATE DEHYDROGENASE INCREASED [None]
  - BLOOD URIC ACID INCREASED [None]
  - FEBRILE NEUTROPENIA [None]
  - TUMOUR LYSIS SYNDROME [None]
